FAERS Safety Report 6895470-3 (Version None)
Quarter: 2010Q3

REPORT INFORMATION
  Report Type: 
  Country: None (occurrence: None)
  Receive Date: 20100802
  Receipt Date: 20100726
  Transmission Date: 20110219
  Serious: Yes (Hospitalization)
  Sender: FDA-Public Use
  Company Number: KR-BRISTOL-MYERS SQUIBB COMPANY-15176480

PATIENT
  Age: 61 Year
  Sex: Female
  Weight: 55 kg

DRUGS (3)
  1. CETUXIMAB [Suspect]
     Indication: GASTROOESOPHAGEAL CANCER
     Dosage: 5MG/ML,6TH RECENT INF:18JUN10
     Route: 042
     Dates: start: 20100514, end: 20100625
  2. CISPLATIN [Suspect]
     Indication: GASTROOESOPHAGEAL CANCER
     Dosage: ON DAY 1 OF CYCLE;RECENT INF: 04JUN2010.
     Route: 042
     Dates: start: 20100514, end: 20100625
  3. XELODA [Suspect]
     Indication: GASTROOESOPHAGEAL CANCER
     Dosage: DAY 1-15 RECENT DOSE:18JUN10
     Route: 048
     Dates: start: 20100514, end: 20100625

REACTIONS (1)
  - PULMONARY EMBOLISM [None]
